FAERS Safety Report 8343860-4 (Version None)
Quarter: 2012Q2

REPORT INFORMATION
  Report Type: 
  Country: None (occurrence: None)
  Receive Date: 20120508
  Receipt Date: 20120430
  Transmission Date: 20120825
  Serious: Yes (Other)
  Sender: FDA-Public Use
  Company Number: US-US-EMD SERONO, INC.-7127795

PATIENT
  Sex: Female

DRUGS (1)
  1. REBIF [Suspect]
     Indication: MULTIPLE SCLEROSIS
     Route: 058
     Dates: start: 20080327

REACTIONS (4)
  - CARPAL TUNNEL DECOMPRESSION [None]
  - PERIPHERAL NERVE DECOMPRESSION [None]
  - INJECTION SITE MASS [None]
  - MUSCLE ATROPHY [None]
